FAERS Safety Report 4526032-0 (Version None)
Quarter: 2004Q4

REPORT INFORMATION
  Report Type: 
  Country: None (occurrence: None)
  Receive Date: 20041129
  Receipt Date: 20040901
  Transmission Date: 20050328
  Serious: Yes (Hospitalization)
  Sender: FDA-Public Use
  Company Number: USA040977152

PATIENT
  Age: 21 Year
  Sex: Male
  Weight: 73 kg

DRUGS (2)
  1. ZYPREXA [Suspect]
     Indication: BIPOLAR DISORDER
     Dosage: 5 MG/1 DAY
     Dates: start: 20040101
  2. LITHIUM [Concomitant]

REACTIONS (5)
  - CONFUSIONAL STATE [None]
  - HYPERTENSION [None]
  - SPEECH DISORDER [None]
  - STARING [None]
  - VOMITING [None]
